FAERS Safety Report 4457887-6 (Version None)
Quarter: 2004Q3

REPORT INFORMATION
  Report Type: 
  Country: None (occurrence: None)
  Receive Date: 20040917
  Receipt Date: 20040621
  Transmission Date: 20050211
  Serious: Yes (Other)
  Sender: FDA-Public Use
  Company Number: US-JNJFOC-20040605962

PATIENT
  Age: 33 Year
  Sex: Female
  Weight: 77.1115 kg

DRUGS (5)
  1. TOPAMAX [Suspect]
     Indication: CONVULSION
     Dosage: 50 MG, 1 IN 1 DAY
     Dates: start: 19960101, end: 20040504
  2. NEURONTIN [Concomitant]
  3. LIBRIUM [Concomitant]
  4. LITHIUM CARBONATE [Concomitant]
  5. HYDRAZINE (HYDRAZINE) [Concomitant]

REACTIONS (5)
  - DIPLOPIA [None]
  - HAEMOGLOBIN DECREASED [None]
  - NAUSEA [None]
  - VISUAL ACUITY REDUCED [None]
  - WEIGHT DECREASED [None]
